APPROVED DRUG PRODUCT: CARISOPRODOL
Active Ingredient: CARISOPRODOL
Strength: 250MG
Dosage Form/Route: TABLET;ORAL
Application: A205126 | Product #001 | TE Code: AB
Applicant: HERITAGE PHARMACEUTICALS INC DBA AVET PHARMACEUTICALS INC
Approved: Jul 8, 2015 | RLD: No | RS: No | Type: RX